FAERS Safety Report 15211484 (Version 1)
Quarter: 2018Q3

REPORT INFORMATION
  Report Type: Spontaneous
  Country: US (occurrence: US)
  Receive Date: 20180702
  Receipt Date: 20180702
  Transmission Date: 20181010
  Serious: Yes (Hospitalization)
  Sender: FDA-Public Use
  Company Number: None

PATIENT
  Age: 70 Year
  Sex: Female

DRUGS (4)
  1. PROLIA [Suspect]
     Active Substance: DENOSUMAB
     Indication: SENILE OSTEOPOROSIS
     Route: 058
  2. MOBIC [Concomitant]
     Active Substance: MELOXICAM
  3. PEPCID [Concomitant]
     Active Substance: FAMOTIDINE
  4. CALCIOM [Concomitant]

REACTIONS (2)
  - Pelvic fracture [None]
  - Fall [None]

NARRATIVE: CASE EVENT DATE: 20180625
